FAERS Safety Report 7153835-9 (Version None)
Quarter: 2010Q4

REPORT INFORMATION
  Report Type: 
  Country: None (occurrence: None)
  Receive Date: 20101213
  Receipt Date: 20101027
  Transmission Date: 20110411
  Serious: No
  Sender: FDA-Public Use
  Company Number: US-ABBOTT-10P-163-0681666-00

PATIENT
  Age: 39 Year
  Sex: Female

DRUGS (1)
  1. MERIDIA [Suspect]
     Indication: OBESITY
     Dates: start: 20000101, end: 20000101

REACTIONS (2)
  - BLOOD PRESSURE INCREASED [None]
  - DRUG INEFFECTIVE [None]
